FAERS Safety Report 8339391-8 (Version None)
Quarter: 2012Q2

REPORT INFORMATION
  Report Type: 
  Country: None (occurrence: None)
  Receive Date: 20120507
  Receipt Date: 20120427
  Transmission Date: 20120825
  Serious: Yes (Hospitalization)
  Sender: FDA-Public Use
  Company Number: US-BAYER-2011-075221

PATIENT
  Sex: Female
  Weight: 54.422 kg

DRUGS (6)
  1. SINGULAIR [Concomitant]
     Dosage: UNK
     Dates: start: 20080901
  2. DROSPIRENONE AND ETHINYL ESTRADIOL [Suspect]
     Dosage: UNK
     Dates: start: 20050101
  3. NSAID'S [Concomitant]
  4. ALLEGRA [Concomitant]
     Dosage: UNK
     Dates: start: 20080901
  5. YASMIN [Suspect]
     Dosage: UNK
     Dates: start: 20050101
  6. VITAMIN C [Concomitant]

REACTIONS (3)
  - PAIN [None]
  - INJURY [None]
  - GALLBLADDER INJURY [None]
